FAERS Safety Report 10194708 (Version 2)
Quarter: 2014Q2

REPORT INFORMATION
  Report Type: Spontaneous
  Country: TW (occurrence: TW)
  Receive Date: 20140526
  Receipt Date: 20140526
  Transmission Date: 20141212
  Serious: Yes (Hospitalization, Other)
  Sender: FDA-Public Use
  Company Number: TW-AMGEN-TWNSP2014036093

PATIENT
  Age: 58 Year
  Sex: Female

DRUGS (2)
  1. ENBREL [Suspect]
     Indication: RHEUMATOID ARTHRITIS
     Dosage: 25 MG, ONCE EVERY 5 DAYS
     Route: 058
     Dates: start: 20140328
  2. SULFASALAZINE [Concomitant]
     Dosage: 500 MG, 2X/DAY
     Route: 048

REACTIONS (1)
  - Postoperative wound infection [Unknown]
